FAERS Safety Report 4999310-9 (Version None)
Quarter: 2006Q2

REPORT INFORMATION
  Report Type: 
  Country: None (occurrence: None)
  Receive Date: 20060511
  Receipt Date: 20060502
  Transmission Date: 20061013
  Serious: Yes (Hospitalization)
  Sender: FDA-Public Use
  Company Number: GB-ABBOTT-06P-167-0332302-00

PATIENT
  Age: 79 Year
  Sex: Female

DRUGS (8)
  1. CLARITHROMYCIN [Suspect]
     Indication: LOWER RESPIRATORY TRACT INFECTION
     Route: 048
     Dates: start: 20060112, end: 20060119
  2. ERYTHROMYCIN BASE [Suspect]
     Indication: LOWER RESPIRATORY TRACT INFECTION
     Route: 048
     Dates: start: 20060102, end: 20060109
  3. SIMVASTATIN [Suspect]
     Indication: LOWER RESPIRATORY TRACT INFECTION
     Route: 048
     Dates: start: 20010101, end: 20060119
  4. LEKOVIT CA [Concomitant]
     Indication: DRUG USE FOR UNKNOWN INDICATION
     Route: 048
  5. ACETYLSALICYLIC ACID SRT [Concomitant]
     Indication: DRUG USE FOR UNKNOWN INDICATION
     Route: 048
  6. FUROSEMIDE [Concomitant]
     Indication: DRUG USE FOR UNKNOWN INDICATION
     Route: 048
  7. ISOSORBIDE MONONITRATE [Concomitant]
     Indication: DRUG USE FOR UNKNOWN INDICATION
     Route: 048
  8. LISINOPRIL [Concomitant]
     Indication: DRUG USE FOR UNKNOWN INDICATION
     Route: 048

REACTIONS (3)
  - DEHYDRATION [None]
  - DIZZINESS [None]
  - MYOPATHY [None]
